FAERS Safety Report 8853324 (Version 1)
Quarter: 2012Q4

REPORT INFORMATION
  Report Type: 
  Country: BR (occurrence: BR)
  Receive Date: 20121022
  Receipt Date: 20121022
  Transmission Date: 20130627
  Serious: Yes (Hospitalization)
  Sender: FDA-Public Use
  Company Number: BR-ROCHE-1146906

PATIENT
  Age: 59 Year
  Sex: Female
  Weight: 64.6 kg

DRUGS (18)
  1. MABTHERA [Suspect]
     Indication: DERMATOMYOSITIS
     Route: 042
     Dates: start: 20111215
  2. ALENDRONATE [Concomitant]
     Route: 065
  3. BROMOPRIDE [Concomitant]
     Route: 065
  4. CALCIUM CARBONATE [Concomitant]
     Route: 065
  5. CYCLOSPORIN [Concomitant]
     Route: 065
  6. DIAZEPAM [Concomitant]
     Route: 065
  7. DILTIAZEM [Concomitant]
     Route: 065
  8. DIPYRONE [Concomitant]
     Route: 065
  9. ENALAPRIL [Concomitant]
     Route: 065
  10. FLUOXETIN [Concomitant]
     Route: 065
  11. HYDROCHLOROTHIAZIDE [Concomitant]
     Route: 065
  12. INSULIN HUMAN [Concomitant]
     Route: 065
  13. INSULIN HUMAN INJECTION, ISOPHANE [Concomitant]
     Route: 065
  14. METFORMIN [Concomitant]
     Route: 065
  15. OMEPRAZOLE [Concomitant]
     Route: 065
  16. OXYCODONE [Concomitant]
     Route: 065
  17. PREDNISONE [Concomitant]
     Route: 065
  18. AZATHIOPRINE [Concomitant]
     Route: 065

REACTIONS (5)
  - Angioedema [Unknown]
  - Dysphagia [Unknown]
  - Diarrhoea [Recovered/Resolved]
  - Pyrexia [Recovered/Resolved]
  - Calcinosis [Unknown]
